FAERS Safety Report 7474469-2 (Version None)
Quarter: 2011Q2

REPORT INFORMATION
  Report Type: 
  Country: None (occurrence: None)
  Receive Date: 20110512
  Receipt Date: 20110127
  Transmission Date: 20111010
  Serious: No
  Sender: FDA-Public Use
  Company Number: US-BAYER-2011-010901

PATIENT
  Age: 63 Year
  Sex: Female

DRUGS (7)
  1. AVELOX [Suspect]
     Dosage: 400 MG, QD
     Dates: start: 20110126
  2. AMITRIPTYLINE HCL [Suspect]
  3. DIOVAN [Concomitant]
  4. VERAPAMIL [Concomitant]
  5. PREMARIN [Suspect]
  6. ZOLOFT [Concomitant]
  7. ACIPHEX [Suspect]

REACTIONS (3)
  - ABDOMINAL DISCOMFORT [None]
  - NAUSEA [None]
  - DIARRHOEA [None]
